FAERS Safety Report 7991708-X (Version None)
Quarter: 2011Q4

REPORT INFORMATION
  Report Type: 
  Country: None (occurrence: None)
  Receive Date: 20111219
  Receipt Date: 20111207
  Transmission Date: 20120403
  Serious: Yes (Other)
  Sender: FDA-Public Use
  Company Number: PHHY2011JP107584

PATIENT
  Age: 52 Year
  Sex: Male

DRUGS (6)
  1. CYCLOPHOSPHAMIDE [Concomitant]
     Dosage: 120 MG/KG, UNK
  2. ETOPOSIDE [Concomitant]
     Dosage: 60 MG/KG, UNK
  3. METHOTREXATE [Concomitant]
     Indication: PROPHYLAXIS AGAINST GRAFT VERSUS HOST DISEASE
     Dosage: UNK UKN, UNK
  4. CYCLOSPORINE [Suspect]
     Indication: PROPHYLAXIS AGAINST GRAFT VERSUS HOST DISEASE
     Dosage: UNK UKN, UNK
     Dates: end: 19951001
  5. BUSULFAN [Concomitant]
     Dosage: 12 MG/KG, UNK
  6. CYCLOPHOSPHAMIDE [Concomitant]
     Dosage: 750 MG/M2, DAY 1

REACTIONS (13)
  - HEPATIC FUNCTION ABNORMAL [None]
  - DELIRIUM [None]
  - MENTAL IMPAIRMENT [None]
  - AGITATION [None]
  - EPSTEIN-BARR VIRUS ASSOCIATED LYMPHOPROLIFERATIVE DISORDER [None]
  - ACUTE GRAFT VERSUS HOST DISEASE [None]
  - ASCITES [None]
  - DISORIENTATION [None]
  - PYREXIA [None]
  - RENAL IMPAIRMENT [None]
  - PLEURAL EFFUSION [None]
  - THROMBOCYTOPENIA [None]
  - ENCEPHALITIS [None]
